FAERS Safety Report 9815002 (Version 2)
Quarter: 2014Q1

REPORT INFORMATION
  Report Type: Report from Study
  Country: US (occurrence: US)
  Receive Date: 20140114
  Receipt Date: 20140115
  Transmission Date: 20141002
  Serious: Yes (Other)
  Sender: FDA-Public Use
  Company Number: US-ROCHE-1330450

PATIENT
  Age: 8 Year
  Sex: Male
  Weight: 39.95 kg

DRUGS (2)
  1. NUTROPIN AQ [Suspect]
     Indication: GROWTH HORMONE DEFICIENCY
     Route: 058
  2. NUTROPIN AQ [Suspect]
     Route: 058

REACTIONS (5)
  - Arthralgia [Unknown]
  - Drug dose omission [Unknown]
  - Headache [Unknown]
  - Abdominal mass [Unknown]
  - Bone disorder [Unknown]
